FAERS Safety Report 6654770-2 (Version None)
Quarter: 2010Q1

REPORT INFORMATION
  Report Type: 
  Country: None (occurrence: None)
  Receive Date: 20100328
  Receipt Date: 20100316
  Transmission Date: 20100710
  Serious: Yes (Hospitalization)
  Sender: FDA-Public Use
  Company Number: FR-BRISTOL-MYERS SQUIBB COMPANY-15020845

PATIENT
  Age: 75 Year
  Sex: Male

DRUGS (3)
  1. AMIKIN [Suspect]
     Indication: LUNG INFECTION
     Dates: start: 20100201
  2. CLAFORAN [Suspect]
     Indication: LUNG INFECTION
     Dates: start: 20100201
  3. TAVANIC [Suspect]
     Indication: LUNG INFECTION
     Dates: start: 20100201

REACTIONS (3)
  - LEUKOPENIA [None]
  - NEUTROPENIA [None]
  - THROMBOCYTOPENIA [None]
